FAERS Safety Report 15255736 (Version 1)
Quarter: 2018Q3

REPORT INFORMATION
  Report Type: Spontaneous
  Country: SG (occurrence: SG)
  Receive Date: 20180808
  Receipt Date: 20180808
  Transmission Date: 20181010
  Serious: Yes (Hospitalization, Other)
  Sender: FDA-Public Use
  Company Number: SG-009507513-1808SGP001070

PATIENT
  Age: 59 Year
  Sex: Female

DRUGS (2)
  1. ALENDRONATE SODIUM. [Suspect]
     Active Substance: ALENDRONATE SODIUM
     Dosage: 70MG ONCE WEEKLY
     Route: 048
  2. CALCIUM (UNSPECIFIED) (+) VITAMIN D (UNSPECIFIED) [Concomitant]
     Active Substance: CALCIUM CARBONATE\VITAMIN D
     Dosage: CALCIUM 450MG AND VITAMIN D 200IU COMBINATION TABLET ONCE DAILY
     Route: 048

REACTIONS (3)
  - Atypical femur fracture [Unknown]
  - Vitamin D deficiency [Unknown]
  - Hypocalcaemia [Unknown]
